FAERS Safety Report 18217524 (Version 2)
Quarter: 2020Q3

REPORT INFORMATION
  Report Type: Spontaneous
  Country: JP (occurrence: JP)
  Receive Date: 20200901
  Receipt Date: 20200909
  Transmission Date: 20201103
  Serious: Yes (Death, Other)
  Sender: FDA-Public Use
  Company Number: JP-AMGEN-JPNSP2020138329

PATIENT
  Age: 83 Year
  Sex: Female

DRUGS (5)
  1. NAUZELIN [Concomitant]
     Active Substance: DOMPERIDONE
     Dosage: UNK
  2. CYMBALTA [Concomitant]
     Active Substance: DULOXETINE HYDROCHLORIDE
     Dosage: UNK
  3. EDIROL [Concomitant]
     Active Substance: ELDECALCITOL
     Dosage: UNK
  4. EVENITY [Suspect]
     Active Substance: ROMOSOZUMAB-AQQG
     Indication: OSTEOPOROSIS
     Dosage: 210 MILLIGRAM
     Route: 058
     Dates: start: 202004, end: 20200806
  5. OPALMON [Concomitant]
     Active Substance: LIMAPROST
     Dosage: UNK

REACTIONS (1)
  - Aortic dissection [Fatal]

NARRATIVE: CASE EVENT DATE: 202008
